FAERS Safety Report 16879355 (Version 1)
Quarter: 2019Q4

REPORT INFORMATION
  Report Type: Spontaneous
  Country: JP (occurrence: JP)
  Receive Date: 20191003
  Receipt Date: 20191003
  Transmission Date: 20200122
  Serious: Yes (Hospitalization, Other)
  Sender: FDA-Public Use
  Company Number: JP-HRAPH01-201900708

PATIENT
  Age: 48 Year
  Sex: Male

DRUGS (1)
  1. METYRAPONE [Suspect]
     Active Substance: METYRAPONE
     Indication: ECTOPIC ACTH SYNDROME

REACTIONS (1)
  - Pneumocystis jirovecii pneumonia [Recovering/Resolving]
